FAERS Safety Report 25382166 (Version 2)
Quarter: 2025Q2

REPORT INFORMATION
  Report Type: Spontaneous
  Country: JP (occurrence: JP)
  Receive Date: 20250531
  Receipt Date: 20250612
  Transmission Date: 20250717
  Serious: Yes (Death)
  Sender: UNITED THERAPEUTICS
  Company Number: JP-UNITED THERAPEUTICS-UNT-2025-018827

PATIENT
  Age: 58 Year
  Sex: Male

DRUGS (2)
  1. TYVASO [Suspect]
     Active Substance: TREPROSTINIL
     Indication: Product used for unknown indication
     Dates: start: 20250510, end: 20250527
  2. TRACLEER [Concomitant]
     Active Substance: BOSENTAN
     Indication: Product used for unknown indication

REACTIONS (1)
  - General physical health deterioration [Fatal]

NARRATIVE: CASE EVENT DATE: 20250527
